FAERS Safety Report 4282850-8 (Version None)
Quarter: 2004Q1

REPORT INFORMATION
  Report Type: 
  Country: None (occurrence: None)
  Receive Date: 20040130
  Receipt Date: 20030619
  Transmission Date: 20041129
  Serious: No
  Sender: FDA-Public Use
  Company Number: US-BRISTOL-MYERS SQUIBB COMPANY-12306502

PATIENT
  Age: 45 Year
  Sex: Female
  Weight: 57 kg

DRUGS (3)
  1. SERZONE [Suspect]
     Indication: DEPRESSION
     Route: 048
  2. TRAZODONE HCL [Concomitant]
  3. ATARAX [Concomitant]

REACTIONS (1)
  - ECZEMA [None]
